FAERS Safety Report 8824573 (Version 1)
Quarter: 2012Q4

REPORT INFORMATION
  Report Type: 
  Country: US (occurrence: US)
  Receive Date: 20121004
  Receipt Date: 20121004
  Transmission Date: 20130627
  Serious: No
  Sender: FDA-Public Use
  Company Number: US-009507513-1210USA001520

PATIENT
  Sex: Male

DRUGS (1)
  1. CLARITIN [Suspect]

REACTIONS (4)
  - Mood altered [Unknown]
  - Adverse event [Unknown]
  - Thinking abnormal [Unknown]
  - Fear [Unknown]
